FAERS Safety Report 8847926 (Version 6)
Quarter: 2016Q3

REPORT INFORMATION
  Report Type: Spontaneous
  Country: US (occurrence: US)
  Receive Date: 20121018
  Receipt Date: 20160927
  Transmission Date: 20161109
  Serious: No
  Sender: FDA-Public Use
  Company Number: US-009507513-1210USA006862

PATIENT
  Sex: Male

DRUGS (1)
  1. PROPECIA [Suspect]
     Active Substance: FINASTERIDE
     Indication: ANDROGENETIC ALOPECIA
     Dosage: 1 MG, QD
     Route: 048
     Dates: start: 1997, end: 20090226

REACTIONS (38)
  - Emotional distress [Not Recovered/Not Resolved]
  - Headache [Unknown]
  - Neck pain [Unknown]
  - Sexual dysfunction [Not Recovered/Not Resolved]
  - Disturbance in sexual arousal [Unknown]
  - Testicular pain [Unknown]
  - Generalised anxiety disorder [Unknown]
  - Oropharyngeal pain [Unknown]
  - Nasopharyngitis [Recovering/Resolving]
  - Organic erectile dysfunction [Unknown]
  - Libido decreased [Unknown]
  - Vitamin D deficiency [Unknown]
  - Joint injury [Unknown]
  - Irritable bowel syndrome [Unknown]
  - Joint injury [Unknown]
  - Androgen deficiency [Unknown]
  - Fatigue [Unknown]
  - Infectious mononucleosis [Unknown]
  - Cognitive disorder [Not Recovered/Not Resolved]
  - Dandruff [Unknown]
  - Sinus disorder [Unknown]
  - Pyrexia [Recovering/Resolving]
  - Erectile dysfunction [Unknown]
  - Cyst [Unknown]
  - Pollakiuria [Unknown]
  - Testicular atrophy [Unknown]
  - Road traffic accident [Unknown]
  - Depression [Not Recovered/Not Resolved]
  - Ear discomfort [Unknown]
  - Genital disorder male [Unknown]
  - Self esteem decreased [Not Recovered/Not Resolved]
  - Ear infection [Unknown]
  - Urinary hesitation [Unknown]
  - Adjustment disorder with depressed mood [Unknown]
  - Libido decreased [Unknown]
  - Adverse event [Unknown]
  - Genital pain [Unknown]
  - Attention deficit/hyperactivity disorder [Unknown]

NARRATIVE: CASE EVENT DATE: 1998
